FAERS Safety Report 23691878 (Version 1)
Quarter: 2024Q1

REPORT INFORMATION
  Report Type: Spontaneous
  Country: US (occurrence: None)
  Receive Date: 20240329
  Receipt Date: 20240329
  Transmission Date: 20240409
  Serious: Yes (Other)
  Sender: FDA-Public Use
  Company Number: None

PATIENT
  Age: 72 Year
  Sex: Female
  Weight: 65.25 kg

DRUGS (3)
  1. ATOVAQUONE\PROGUANIL HYDROCHLORIDE [Suspect]
     Active Substance: ATOVAQUONE\PROGUANIL HYDROCHLORIDE
     Indication: Malaria
     Dosage: 1 TABLET DAILY ORAL?
     Route: 048
     Dates: start: 20231116, end: 20231202
  2. VITAMINS [Concomitant]
     Active Substance: VITAMINS
  3. FLAXSEED [Concomitant]
     Active Substance: FLAX SEED

REACTIONS (1)
  - Urticaria [None]

NARRATIVE: CASE EVENT DATE: 20231202
